FAERS Safety Report 10514127 (Version 1)
Quarter: 2014Q4

REPORT INFORMATION
  Report Type: Spontaneous
  Country: US (occurrence: US)
  Receive Date: 20141013
  Receipt Date: 20141013
  Transmission Date: 20150528
  Serious: Yes (Hospitalization)
  Sender: FDA-Public Use
  Company Number: US-B.I. PHARMACEUTICALS,INC./RIDGEFIELD-2014-BI-47775BP

PATIENT
  Sex: Male
  Weight: 82.1 kg

DRUGS (2)
  1. PRADAXA [Suspect]
     Active Substance: DABIGATRAN ETEXILATE MESYLATE
     Indication: PRODUCT USED FOR UNKNOWN INDICATION
     Route: 065
  2. COUMADIN [Suspect]
     Active Substance: WARFARIN SODIUM
     Indication: PRODUCT USED FOR UNKNOWN INDICATION
     Route: 065
     Dates: end: 2012

REACTIONS (9)
  - Anaemia [Unknown]
  - Contusion [Unknown]
  - Renal failure [Unknown]
  - Gastritis haemorrhagic [Recovered/Resolved]
  - Atrial fibrillation [Unknown]
  - Gastrointestinal haemorrhage [Recovered/Resolved]
  - Ulcer haemorrhage [Unknown]
  - Blood potassium decreased [Unknown]
  - Eustachian tube dysfunction [Unknown]

NARRATIVE: CASE EVENT DATE: 2012
